FAERS Safety Report 6176507-6 (Version None)
Quarter: 2009Q2

REPORT INFORMATION
  Report Type: 
  Country: None (occurrence: None)
  Receive Date: 20090501
  Receipt Date: 20090423
  Transmission Date: 20091009
  Serious: Yes (Hospitalization, Other)
  Sender: FDA-Public Use
  Company Number: PHEH2009US02549

PATIENT
  Sex: Female

DRUGS (18)
  1. TASIGNA [Suspect]
     Indication: CHRONIC MYELOID LEUKAEMIA
     Dosage: 200 MG, BID
     Dates: start: 20080519
  2. AVELOX [Interacting]
     Dosage: UNK
  3. VERAPAMIL [Interacting]
     Dosage: 120 MG, QD
  4. ADVAIR HFA [Concomitant]
     Dosage: 500/50 1 TWICE DAILY
  5. METHOCARBAMOL [Concomitant]
     Indication: MUSCLE SPASMS
     Dosage: 750 MG, PRN
  6. BUTALBITAL [Concomitant]
     Indication: HEADACHE
     Dosage: AS NEEDED
  7. ALBUTEROL [Concomitant]
     Indication: ASTHMA
     Dosage: 2 PUFFS AS NEEDED
  8. PRILOSEC [Concomitant]
     Indication: HIATUS HERNIA
     Dosage: 20 MG, QD
  9. LORATADINE [Concomitant]
     Indication: HYPERSENSITIVITY
     Dosage: 10 MG, QD
  10. BENICAR [Concomitant]
     Indication: BLOOD PRESSURE
     Dosage: 20 MG, QD
  11. LASIX [Concomitant]
     Indication: CARDIAC FAILURE CONGESTIVE
     Dosage: 80 MG, QD
  12. ALDACTONE [Concomitant]
     Indication: FLUID IMBALANCE
     Dosage: 25 MG, QD
  13. LOVASTATIN [Concomitant]
     Indication: BLOOD CHOLESTEROL
     Dosage: 20 MG, QD
  14. XANAX [Concomitant]
     Indication: ANXIETY
     Dosage: .25 MG EVERY 8 HOURS AS NEEDED
  15. ONDANSETRON [Concomitant]
     Indication: NAUSEA
     Dosage: 4 MG THREE TIMES DAILY AS NEEDED
  16. CALCIUM CITRATE W/VITAMIN D NOS [Concomitant]
     Dosage: 1 DAILY
  17. OSTEO BI-FLEX [Concomitant]
     Indication: ARTHRITIS
     Dosage: 1 DAILY
  18. MULTIVIT [Concomitant]
     Dosage: 1 DAILY

REACTIONS (6)
  - ATRIOVENTRICULAR BLOCK [None]
  - CARDIAC PACEMAKER INSERTION [None]
  - CHEST PAIN [None]
  - DRUG INTERACTION [None]
  - FATIGUE [None]
  - MALAISE [None]
